FAERS Safety Report 5686728-4 (Version None)
Quarter: 2008Q1

REPORT INFORMATION
  Report Type: 
  Country: None (occurrence: None)
  Receive Date: 20080328
  Receipt Date: 20070508
  Transmission Date: 20080703
  Serious: No
  Sender: FDA-Public Use
  Company Number: US-BAYER-US-2007-016485

PATIENT
  Age: 34 Year
  Sex: Female
  Weight: 51 kg

DRUGS (3)
  1. MIRENA [Suspect]
     Indication: CONTRACEPTION
     Route: 015
     Dates: start: 20070413
  2. CELEXA [Concomitant]
     Indication: ANXIETY
     Dosage: UNIT DOSE: 20 MG
     Route: 048
     Dates: start: 20070301
  3. VICODIN [Concomitant]
     Indication: ABDOMINAL PAIN LOWER

REACTIONS (2)
  - ABDOMINAL PAIN LOWER [None]
  - PREMENSTRUAL SYNDROME [None]
